FAERS Safety Report 9847032 (Version 3)
Quarter: 2015Q1

REPORT INFORMATION
  Report Type: Spontaneous
  Country: US (occurrence: US)
  Receive Date: 20140127
  Receipt Date: 20150126
  Transmission Date: 20150721
  Serious: No
  Sender: FDA-Public Use
  Company Number: US-009507513-1401USA011456

PATIENT
  Sex: Female
  Weight: 80.73 kg

DRUGS (1)
  1. NUVARING [Suspect]
     Active Substance: ETHINYL ESTRADIOL\ETONOGESTREL
     Indication: MENOPAUSAL SYMPTOMS
     Dosage: UNK
     Route: 067
     Dates: start: 2011, end: 201210

REACTIONS (4)
  - Gastrointestinal surgery [Unknown]
  - Deep vein thrombosis [Unknown]
  - Phlebitis superficial [Unknown]
  - Arthralgia [Unknown]

NARRATIVE: CASE EVENT DATE: 201204
